FAERS Safety Report 15089285 (Version 1)
Quarter: 2018Q2

REPORT INFORMATION
  Report Type: Spontaneous
  Country: US (occurrence: US)
  Receive Date: 20180605
  Receipt Date: 20180605
  Transmission Date: 20180711
  Serious: Yes (Hospitalization)
  Sender: FDA-Public Use
  Company Number: None

PATIENT
  Age: 82 Year
  Sex: Male
  Weight: 83.23 kg

DRUGS (2)
  1. ASPIRIN. [Suspect]
     Active Substance: ASPIRIN
     Indication: DEEP VEIN THROMBOSIS
     Route: 048
     Dates: start: 20180327, end: 20180404
  2. PREDNISONE. [Suspect]
     Active Substance: PREDNISONE
     Indication: PEMPHIGOID
     Dates: start: 20180324

REACTIONS (8)
  - Unevaluable event [None]
  - Gastrointestinal haemorrhage [None]
  - Barrett^s oesophagus [None]
  - Haemorrhage [None]
  - Abnormal faeces [None]
  - Anaemia [None]
  - Hypotension [None]
  - Thrombocytopenia [None]

NARRATIVE: CASE EVENT DATE: 20180404
